FAERS Safety Report 18500306 (Version 1)
Quarter: 2020Q4

REPORT INFORMATION
  Report Type: Spontaneous
  Country: US (occurrence: US)
  Receive Date: 20201113
  Receipt Date: 20201113
  Transmission Date: 20210114
  Serious: Yes (Hospitalization, Other)
  Sender: FDA-Public Use
  Company Number: US-AUROBINDO-AUR-APL-2020-056185

PATIENT
  Age: 54 Year
  Sex: Female

DRUGS (4)
  1. PREDNISONE. [Suspect]
     Active Substance: PREDNISONE
     Indication: SYSTEMIC LUPUS ERYTHEMATOSUS
     Dosage: UNK
     Route: 065
  2. MYCOPHENOLATE MOFETIL. [Suspect]
     Active Substance: MYCOPHENOLATE MOFETIL
     Indication: SYSTEMIC LUPUS ERYTHEMATOSUS
     Dosage: UNK
     Route: 065
  3. QUINACRINE [Suspect]
     Active Substance: QUINACRINE
     Indication: SYSTEMIC LUPUS ERYTHEMATOSUS
     Dosage: UNK
     Route: 065
  4. METHYLPREDNISOLONE SODIUM SUCCINATE FOR INJECTION [Suspect]
     Active Substance: METHYLPREDNISOLONE SODIUM SUCCINATE
     Indication: SYSTEMIC LUPUS ERYTHEMATOSUS
     Dosage: UNK
     Route: 065

REACTIONS (15)
  - Lymphopenia [Unknown]
  - Cranial nerve disorder [Recovered/Resolved]
  - Necrotising retinitis [Unknown]
  - Varicella zoster virus infection [Unknown]
  - Myalgia [Unknown]
  - Paraplegia [Recovering/Resolving]
  - Hypoacusis [Recovered/Resolved]
  - Dysphagia [Recovered/Resolved]
  - Angiopathy [Unknown]
  - Blindness [Not Recovered/Not Resolved]
  - Fatigue [Unknown]
  - Motor dysfunction [Recovering/Resolving]
  - Muscular weakness [Recovered/Resolved]
  - Sensory loss [Recovered/Resolved]
  - Myelitis [Recovered/Resolved]
